FAERS Safety Report 5536577-2 (Version None)
Quarter: 2007Q4

REPORT INFORMATION
  Report Type: 
  Country: None (occurrence: None)
  Receive Date: 20071206
  Receipt Date: 20070914
  Transmission Date: 20080405
  Serious: Yes (Other)
  Sender: FDA-Public Use
  Company Number: US-AMGEN-US243631

PATIENT
  Sex: Female
  Weight: 73.5 kg

DRUGS (3)
  1. ENBREL [Suspect]
     Indication: PSORIATIC ARTHROPATHY
     Route: 058
     Dates: start: 20030501, end: 20070801
  2. ADVIL LIQUI-GELS [Concomitant]
     Route: 048
  3. CALCIUM [Concomitant]
     Route: 048

REACTIONS (2)
  - CYST [None]
  - RENAL NEOPLASM [None]
